FAERS Safety Report 23049408 (Version 4)
Quarter: 2023Q4

REPORT INFORMATION
  Report Type: Spontaneous
  Country: US (occurrence: US)
  Receive Date: 20231010
  Receipt Date: 20231220
  Transmission Date: 20240110
  Serious: Yes (Hospitalization)
  Sender: FDA-Public Use
  Company Number: US-INSUD PHARMA-2310US06900

PATIENT

DRUGS (1)
  1. SLYND [Suspect]
     Active Substance: DROSPIRENONE
     Indication: Heavy menstrual bleeding
     Dosage: SINGLE DOSE
     Route: 048
     Dates: start: 20231003, end: 20231003

REACTIONS (25)
  - Psychotic disorder [Not Recovered/Not Resolved]
  - Disorganised speech [Recovering/Resolving]
  - Mood swings [Recovering/Resolving]
  - Mania [Recovering/Resolving]
  - Emotional distress [Recovering/Resolving]
  - Crying [Unknown]
  - Thinking abnormal [Recovering/Resolving]
  - Breast tenderness [Recovering/Resolving]
  - Acne [Recovering/Resolving]
  - Diplopia [Recovered/Resolved]
  - Palpitations [Recovering/Resolving]
  - Breast pain [Recovering/Resolving]
  - Paranoia [Recovering/Resolving]
  - Abnormal dreams [Recovering/Resolving]
  - Hormone level abnormal [Recovering/Resolving]
  - Premenstrual dysphoric disorder [Recovering/Resolving]
  - Anxiety [Unknown]
  - Premenstrual syndrome [Unknown]
  - Fear [Unknown]
  - Sleep terror [Unknown]
  - Disorientation [Not Recovered/Not Resolved]
  - Eating disorder [Not Recovered/Not Resolved]
  - Abnormal loss of weight [Not Recovered/Not Resolved]
  - Menstruation irregular [Not Recovered/Not Resolved]
  - Off label use [Unknown]

NARRATIVE: CASE EVENT DATE: 20230101
